FAERS Safety Report 4609651-2 (Version None)
Quarter: 2005Q1

REPORT INFORMATION
  Report Type: 
  Country: None (occurrence: None)
  Receive Date: 20050314
  Receipt Date: 20050314
  Transmission Date: 20050727
  Serious: Yes (Other)
  Sender: FDA-Public Use
  Company Number: None

PATIENT
  Sex: Female
  Weight: 56.246 kg

DRUGS (3)
  1. PROTOPIC [Suspect]
     Indication: ECZEMA
     Dosage: AS  NEEDED 2/DAY CUTANEOUS
     Route: 003
     Dates: start: 20040910, end: 20050201
  2. ZYRTEC [Concomitant]
  3. OHRTORYCYCLINE LO [Concomitant]

REACTIONS (7)
  - EPSTEIN-BARR VIRUS INFECTION [None]
  - HEPATIC INFECTION [None]
  - INSOMNIA [None]
  - NIGHT SWEATS [None]
  - SLUGGISHNESS [None]
  - WEIGHT DECREASED [None]
  - WHITE BLOOD CELL COUNT DECREASED [None]
